FAERS Safety Report 10095562 (Version 1)
Quarter: 2014Q2

REPORT INFORMATION
  Report Type: Spontaneous
  Country: US (occurrence: None)
  Receive Date: 20140418
  Receipt Date: 20140418
  Transmission Date: 20141212
  Serious: Yes (Other)
  Sender: FDA-Public Use
  Company Number: US-ZYDUS-003050

PATIENT
  Age: 78 Year
  Sex: Male

DRUGS (2)
  1. SPIRONOLACTONE [Suspect]
     Indication: HYPERTENSION
  2. CARVEDILOL [Suspect]
     Indication: HYPERTENSION

REACTIONS (7)
  - Renal failure acute [None]
  - Bradycardia [None]
  - Hypotension [None]
  - Rales [None]
  - Hyperkalaemia [None]
  - Haemodialysis [None]
  - Defect conduction intraventricular [None]
